FAERS Safety Report 12758818 (Version 1)
Quarter: 2016Q3

REPORT INFORMATION
  Report Type: Spontaneous
  Country: US (occurrence: US)
  Receive Date: 20160916
  Receipt Date: 20160916
  Transmission Date: 20161109
  Serious: No
  Sender: FDA-Public Use
  Company Number: None

PATIENT
  Age: 79 Year

DRUGS (1)
  1. IBRANCE [Suspect]
     Active Substance: PALBOCICLIB
     Indication: METASTASES TO LUNG
     Route: 048
     Dates: start: 20160108

REACTIONS (3)
  - Alopecia [None]
  - Fatigue [None]
  - Activities of daily living impaired [None]

NARRATIVE: CASE EVENT DATE: 20160623
